FAERS Safety Report 18417579 (Version 2)
Quarter: 2021Q1

REPORT INFORMATION
  Report Type: Spontaneous
  Country: US (occurrence: US)
  Receive Date: 20201022
  Receipt Date: 20210107
  Transmission Date: 20210419
  Serious: Yes (Hospitalization)
  Sender: FDA-Public Use
  Company Number: 2020SGN03031

PATIENT
  Sex: Female

DRUGS (5)
  1. CAPECITABINE. [Concomitant]
     Active Substance: CAPECITABINE
     Dosage: 2000MG TWICE A DAY X 14 DAYS, 7 DAYS OFF
  2. CAPECITABINE. [Concomitant]
     Active Substance: CAPECITABINE
     Indication: BREAST CANCER FEMALE
     Dosage: 1500 MG, BID
  3. TUKYSA [Suspect]
     Active Substance: TUCATINIB
     Indication: BREAST CANCER FEMALE
     Dosage: 300 MG, BID
  4. TUKYSA [Suspect]
     Active Substance: TUCATINIB
     Dosage: UNK
     Dates: start: 20200704
  5. HERCEPTIN [Concomitant]
     Active Substance: TRASTUZUMAB
     Indication: BREAST CANCER FEMALE
     Dosage: UNK, Q3WEEKS

REACTIONS (11)
  - Urinary tract infection [Unknown]
  - Blood creatinine increased [Recovered/Resolved]
  - Pain [Unknown]
  - Decreased appetite [Unknown]
  - Arthralgia [Unknown]
  - Nausea [Unknown]
  - White blood cell count decreased [Unknown]
  - COVID-19 [Unknown]
  - Abdominal pain [Unknown]
  - Diarrhoea [Unknown]
  - Product dose omission issue [Unknown]
